FAERS Safety Report 8458787-7 (Version None)
Quarter: 2012Q2

REPORT INFORMATION
  Report Type: 
  Country: None (occurrence: None)
  Receive Date: 20120622
  Receipt Date: 20120613
  Transmission Date: 20120825
  Serious: Yes (Hospitalization)
  Sender: FDA-Public Use
  Company Number: US-BAYER-2012-014578

PATIENT
  Age: 21 Year
  Sex: Female
  Weight: 64.399 kg

DRUGS (1)
  1. YAZ [Suspect]
     Indication: CONTRACEPTION
     Dosage: UNK
     Dates: start: 20080901, end: 20090201

REACTIONS (4)
  - FEAR OF DISEASE [None]
  - PAIN [None]
  - CHEST PAIN [None]
  - PULMONARY EMBOLISM [None]
